FAERS Safety Report 6194240-1 (Version None)
Quarter: 2009Q2

REPORT INFORMATION
  Report Type: 
  Country: None (occurrence: None)
  Receive Date: 20090507
  Receipt Date: 20090423
  Transmission Date: 20091009
  Serious: Yes (Hospitalization)
  Sender: FDA-Public Use
  Company Number: THYM-1001035

PATIENT
  Age: 66 Year
  Sex: Female

DRUGS (9)
  1. THYMOGLOBULIN [Suspect]
     Indication: BONE MARROW FAILURE
     Dosage: 189 MG, QD, INTRAVENOUS
     Route: 042
     Dates: start: 20090224, end: 20090226
  2. FLUCONAZOLE [Suspect]
     Indication: DRUG USE FOR UNKNOWN INDICATION
     Dosage: 200 MG, QD
     Dates: start: 20090223, end: 20090225
  3. LASIX [Suspect]
     Indication: DRUG USE FOR UNKNOWN INDICATION
     Dosage: 20 MG, QD
     Dates: start: 20090207, end: 20090208
  4. LASIX [Suspect]
     Indication: DRUG USE FOR UNKNOWN INDICATION
     Dosage: 20 MG, QD
     Dates: start: 20090223, end: 20090224
  5. TRAMADOL HCL [Concomitant]
  6. POLARAMINE [Concomitant]
  7. VALACYCLOVIR HCL [Concomitant]
  8. SOLU-MEDROL [Concomitant]
  9. CYCLOSPORINE [Concomitant]

REACTIONS (3)
  - CHILLS [None]
  - CYTOLYTIC HEPATITIS [None]
  - SERUM SICKNESS [None]
